FAERS Safety Report 7038607-8 (Version None)
Quarter: 2010Q4

REPORT INFORMATION
  Report Type: 
  Country: None (occurrence: None)
  Receive Date: 20101011
  Receipt Date: 20100930
  Transmission Date: 20110411
  Serious: No
  Sender: FDA-Public Use
  Company Number: US-PFIZER INC-2010124571

PATIENT
  Sex: Female
  Weight: 62 kg

DRUGS (10)
  1. DEPO-ESTRADIOL [Suspect]
     Indication: HORMONE REPLACEMENT THERAPY
     Dosage: 1 MG, EVERY 3 WEEKS
     Dates: start: 20040101
  2. LEVOXYL [Concomitant]
     Indication: THYROIDECTOMY
     Dosage: 1.5 MG, DAILY
     Route: 048
     Dates: start: 19980101
  3. PROZAC [Concomitant]
     Indication: DEPRESSION
     Dosage: 40 MG, DAILY
  4. FLUOCINOLONE ACETONIDE [Concomitant]
     Indication: DYSPEPSIA
     Dosage: 150 MG, 2X/DAY
  5. TYLENOL W/ CODEINE NO. 3 [Concomitant]
     Indication: BACK PAIN
     Dosage: UNK
  6. HALDOL [Concomitant]
     Indication: PAIN
     Dosage: UNK
  7. IBUPROFEN [Concomitant]
     Indication: PAIN
     Dosage: UNK
  8. PREMARIN [Concomitant]
     Indication: HORMONE REPLACEMENT THERAPY
     Dosage: UNK
  9. EPITOL [Concomitant]
     Dosage: UNK
  10. MORPHINE [Concomitant]
     Dosage: UNK

REACTIONS (1)
  - ABDOMINAL DISCOMFORT [None]
